FAERS Safety Report 23549704 (Version 1)
Quarter: 2024Q1

REPORT INFORMATION
  Report Type: Spontaneous
  Country: US (occurrence: None)
  Receive Date: 20240220
  Receipt Date: 20240220
  Transmission Date: 20240409
  Serious: No
  Sender: FDA-Public Use
  Company Number: None

PATIENT
  Sex: Female

DRUGS (1)
  1. TOBI PODHALER [Suspect]
     Active Substance: TOBRAMYCIN
     Indication: Cystic fibrosis
     Dosage: INHALE THE CONTENTS OF 4 CAPSULES VIA ORAL INHALATION 2 TIMES A DAY FOR 28 DAYS ON, THEN 28 DAYS OFF
     Route: 055
     Dates: start: 202312

REACTIONS (1)
  - Vomiting [None]
